FAERS Safety Report 19762045 (Version 1)
Quarter: 2021Q3

REPORT INFORMATION
  Report Type: Spontaneous
  Country: US (occurrence: US)
  Receive Date: 20210830
  Receipt Date: 20210830
  Transmission Date: 20211014
  Serious: Yes (Hospitalization, Other)
  Sender: FDA-Public Use
  Company Number: US-GLOBAL BLOOD THERAPEUTICS INC-US-GBT-21-02910

PATIENT
  Age: 39 Year
  Sex: Male

DRUGS (2)
  1. DILAUDID [Concomitant]
     Active Substance: HYDROMORPHONE HYDROCHLORIDE
     Indication: PAIN MANAGEMENT
     Dosage: NOT PROVIDED
     Route: 042
     Dates: start: 20200617
  2. OXBRYTA [Suspect]
     Active Substance: VOXELOTOR
     Indication: SICKLE CELL DISEASE
     Route: 048
     Dates: start: 20200414, end: 2021

REACTIONS (3)
  - Hip surgery [Not Recovered/Not Resolved]
  - Bone marrow transplant [Unknown]
  - Therapy cessation [Unknown]

NARRATIVE: CASE EVENT DATE: 2021
